FAERS Safety Report 13740882 (Version 1)
Quarter: 2017Q3

REPORT INFORMATION
  Report Type: Spontaneous
  Country: US (occurrence: US)
  Receive Date: 20170710
  Receipt Date: 20170710
  Transmission Date: 20171127
  Serious: Yes (Disabling, Other)
  Sender: FDA-Public Use
  Company Number: None

PATIENT
  Age: 55 Year
  Sex: Female
  Weight: 56.25 kg

DRUGS (1)
  1. CLONAZEPAM. [Suspect]
     Active Substance: CLONAZEPAM
     Indication: ANXIETY
     Dosage: ?          QUANTITY:1 TABLET(S);?
     Route: 048
     Dates: start: 20150201, end: 20150806

REACTIONS (20)
  - Cardiac disorder [None]
  - Muscle tightness [None]
  - Headache [None]
  - Cardiac valve disease [None]
  - Muscle spasms [None]
  - Anxiety [None]
  - Dyspnoea [None]
  - Musculoskeletal stiffness [None]
  - Depression [None]
  - Photophobia [None]
  - Suicidal ideation [None]
  - Dizziness [None]
  - Insomnia [None]
  - Hyperaesthesia [None]
  - Dyspepsia [None]
  - Nausea [None]
  - Tinnitus [None]
  - Skin burning sensation [None]
  - Withdrawal syndrome [None]
  - Neuralgia [None]

NARRATIVE: CASE EVENT DATE: 20150806
